FAERS Safety Report 16996997 (Version 1)
Quarter: 2019Q4

REPORT INFORMATION
  Report Type: Spontaneous
  Country: US (occurrence: US)
  Receive Date: 20190924
  Receipt Date: 20190924
  Transmission Date: 20200122
  Serious: No
  Sender: FDA-Public Use
  Company Number: None

PATIENT
  Age: 54 Year
  Sex: Male

DRUGS (1)
  1. COPAXONE [Suspect]
     Active Substance: GLATIRAMER ACETATE
     Route: 058
     Dates: start: 201605

REACTIONS (4)
  - Pharyngeal swelling [None]
  - Chills [None]
  - Tremor [None]
  - Dyspnoea [None]

NARRATIVE: CASE EVENT DATE: 20190924
